FAERS Safety Report 6391100-8 (Version None)
Quarter: 2009Q4

REPORT INFORMATION
  Report Type: 
  Country: None (occurrence: None)
  Receive Date: 20091006
  Receipt Date: 20091006
  Transmission Date: 20100525
  Serious: Yes (Other)
  Sender: FDA-Public Use
  Company Number: None

PATIENT
  Age: 23 Year
  Sex: Female

DRUGS (1)
  1. LAMICTAL [Suspect]
     Dosage: 100 MG ONCE QD PO
     Route: 048

REACTIONS (4)
  - HEADACHE [None]
  - MOOD SWINGS [None]
  - NAUSEA [None]
  - PRODUCT SUBSTITUTION ISSUE [None]
